FAERS Safety Report 24396552 (Version 1)
Quarter: 2024Q4

REPORT INFORMATION
  Report Type: Spontaneous
  Country: US (occurrence: US)
  Receive Date: 20241004
  Receipt Date: 20241004
  Transmission Date: 20250115
  Serious: No
  Sender: LEXICON PHARMACEUTICALS
  Company Number: US-LEX-000472

PATIENT
  Age: 56 Year
  Sex: Female

DRUGS (10)
  1. INPEFA [Suspect]
     Active Substance: SOTAGLIFLOZIN
     Indication: Product used for unknown indication
     Route: 048
     Dates: start: 20240817, end: 20240904
  2. Adults Multivitamin [Concomitant]
  3. PROBIOTICS NOS [Concomitant]
     Active Substance: PROBIOTICS NOS
  4. ZYRTEC-D [Concomitant]
     Active Substance: CETIRIZINE HYDROCHLORIDE\PSEUDOEPHEDRINE HYDROCHLORIDE
  5. HERBALS\TURMERIC [Concomitant]
     Active Substance: HERBALS\TURMERIC
  6. METOPROLOL SUCCINATE [Concomitant]
     Active Substance: METOPROLOL SUCCINATE
  7. MONTELUKAST [Concomitant]
     Active Substance: MONTELUKAST
  8. ASCORBIC ACID [Concomitant]
     Active Substance: ASCORBIC ACID
  9. Adult Multi plus Omega-3 [Concomitant]
  10. ENTRESTO [Concomitant]
     Active Substance: SACUBITRIL\VALSARTAN

REACTIONS (1)
  - Headache [Unknown]

NARRATIVE: CASE EVENT DATE: 20240904
